FAERS Safety Report 25769558 (Version 1)
Quarter: 2025Q3

REPORT INFORMATION
  Report Type: Report from Study
  Country: US (occurrence: US)
  Receive Date: 20250906
  Receipt Date: 20250906
  Transmission Date: 20251020
  Serious: Yes (Other)
  Sender: ALEXION PHARMACEUTICALS
  Company Number: US-AstraZeneca-CH-00942712A

PATIENT
  Sex: Female

DRUGS (1)
  1. OLAPARIB [Suspect]
     Active Substance: OLAPARIB
     Route: 065

REACTIONS (7)
  - Ovarian cancer [Unknown]
  - Gait disturbance [Unknown]
  - Memory impairment [Unknown]
  - Dysgraphia [Unknown]
  - West Nile viral infection [Unknown]
  - Asthenia [Unknown]
  - Balance disorder [Unknown]
